FAERS Safety Report 23435794 (Version 1)
Quarter: 2024Q1

REPORT INFORMATION
  Report Type: Spontaneous
  Country: US (occurrence: US)
  Receive Date: 20240124
  Receipt Date: 20240124
  Transmission Date: 20240409
  Serious: No
  Sender: FDA-Public Use
  Company Number: US-SUN PHARMACEUTICAL INDUSTRIES LTD-2022R1-369932

PATIENT
  Sex: Female

DRUGS (1)
  1. LEVULAN KERASTICK [Suspect]
     Active Substance: AMINOLEVULINIC ACID HYDROCHLORIDE
     Indication: Photodynamic therapy
     Dosage: UNK
     Route: 065
     Dates: start: 20221213, end: 20221213

REACTIONS (3)
  - Product quality issue [Unknown]
  - Poor quality product administered [Unknown]
  - Circumstance or information capable of leading to medication error [Unknown]
